FAERS Safety Report 8971950 (Version 1)
Quarter: 2012Q4

REPORT INFORMATION
  Report Type: 
  Country: US (occurrence: US)
  Receive Date: 20121218
  Receipt Date: 20121218
  Transmission Date: 20130627
  Serious: Yes (Hospitalization)
  Sender: FDA-Public Use
  Company Number: US-ACTELION-A-US2012-76065

PATIENT
  Age: 57 Year
  Sex: Female

DRUGS (2)
  1. TRACLEER [Suspect]
     Indication: PULMONARY ARTERIAL HYPERTENSION
     Dosage: UNK
     Route: 048
  2. COUMADIN [Concomitant]

REACTIONS (5)
  - Mastectomy [Recovering/Resolving]
  - Breast haematoma [Recovering/Resolving]
  - Haematoma evacuation [Recovering/Resolving]
  - Breast prosthesis user [Recovering/Resolving]
  - Transfusion [Recovering/Resolving]
